FAERS Safety Report 12986354 (Version 1)
Quarter: 2016Q4

REPORT INFORMATION
  Report Type: Report from Study
  Country: PA (occurrence: PA)
  Receive Date: 20161130
  Receipt Date: 20161130
  Transmission Date: 20170207
  Serious: Yes (Other)
  Sender: FDA-Public Use
  Company Number: PHHY2015PA102270

PATIENT
  Age: 34 Year
  Sex: Female

DRUGS (1)
  1. GILENYA [Suspect]
     Active Substance: FINGOLIMOD HYDROCHLORIDE
     Indication: PRODUCT USED FOR UNKNOWN INDICATION
     Dosage: 0.5 MG, UNK
     Route: 065

REACTIONS (7)
  - Asthenopia [Unknown]
  - Bruxism [Recovered/Resolved]
  - Central nervous system lesion [Unknown]
  - Headache [Unknown]
  - Choking sensation [Unknown]
  - Back pain [Unknown]
  - Visual impairment [Unknown]
